FAERS Safety Report 22034149 (Version 1)
Quarter: 2023Q1

REPORT INFORMATION
  Report Type: Spontaneous
  Country: US (occurrence: US)
  Receive Date: 20230224
  Receipt Date: 20230224
  Transmission Date: 20230417
  Serious: No
  Sender: FDA-Public Use
  Company Number: US-SA-SAC20230224000292

PATIENT
  Sex: Female

DRUGS (1)
  1. DUPIXENT [Suspect]
     Active Substance: DUPILUMAB
     Dosage: 300 MG/FREQUENCY: OTHER
     Route: 058

REACTIONS (3)
  - Injection site pain [Unknown]
  - Fatigue [Unknown]
  - Oropharyngeal pain [Unknown]
